FAERS Safety Report 8389086-X (Version None)
Quarter: 2012Q2

REPORT INFORMATION
  Report Type: 
  Country: None (occurrence: None)
  Receive Date: 20120528
  Receipt Date: 20120518
  Transmission Date: 20120825
  Serious: Yes (Other)
  Sender: FDA-Public Use
  Company Number: PHHY2012BR043489

PATIENT
  Sex: Female
  Weight: 40 kg

DRUGS (3)
  1. FORMOTEROL FUMARATE [Suspect]
     Indication: EMPHYSEMA
     Dosage: 1 DF, Q12H
  2. FORMOTEROL FUMARATE [Suspect]
     Dosage: UNK UKN, UNK
     Dates: start: 20120518
  3. NAPROXEN [Concomitant]
     Indication: PAIN IN EXTREMITY
     Dosage: 1 DF, UNK
     Route: 048

REACTIONS (11)
  - PNEUMONIA [None]
  - CATARACT [None]
  - CONCOMITANT DISEASE AGGRAVATED [None]
  - FATIGUE [None]
  - MEMORY IMPAIRMENT [None]
  - PYREXIA [None]
  - MALAISE [None]
  - PAIN [None]
  - PLEURAL NEOPLASM [None]
  - EYE PAIN [None]
  - PAIN IN EXTREMITY [None]
